FAERS Safety Report 5204370-6 (Version None)
Quarter: 2007Q1

REPORT INFORMATION
  Report Type: 
  Country: None (occurrence: None)
  Receive Date: 20070110
  Receipt Date: 20060306
  Transmission Date: 20070707
  Serious: Yes (Hospitalization)
  Sender: FDA-Public Use
  Company Number: US-BRISTOL-MYERS SQUIBB COMPANY-13306170

PATIENT
  Age: 4 Decade
  Sex: Female

DRUGS (3)
  1. ABILIFY [Suspect]
     Indication: SCHIZOPHRENIA
     Route: 048
     Dates: start: 20060106, end: 20060125
  2. GEODON [Suspect]
     Dates: end: 20060125
  3. CLOZARIL [Suspect]
     Dates: end: 20060125

REACTIONS (1)
  - NEUROLEPTIC MALIGNANT SYNDROME [None]
